FAERS Safety Report 5953374-4 (Version None)
Quarter: 2008Q4

REPORT INFORMATION
  Report Type: 
  Country: None (occurrence: None)
  Receive Date: 20081114
  Receipt Date: 20081105
  Transmission Date: 20090506
  Serious: Yes (Other)
  Sender: FDA-Public Use
  Company Number: US-ABBOTT-08P-163-0481411-01

PATIENT
  Sex: Female
  Weight: 87.7 kg

DRUGS (11)
  1. HUMIRA [Suspect]
     Indication: RHEUMATOID ARTHRITIS
     Route: 058
     Dates: start: 20010405, end: 20080920
  2. FOLIC ACID [Concomitant]
     Indication: RHEUMATOID ARTHRITIS
     Route: 048
     Dates: start: 20060823
  3. ACETAMINOPHEN W/ CODEINE [Concomitant]
     Indication: RHEUMATOID ARTHRITIS
     Dosage: 1-2 TABLETS
     Route: 048
     Dates: start: 20010201
  4. METHOTREXATE [Concomitant]
     Indication: RHEUMATOID ARTHRITIS
     Route: 048
     Dates: start: 20060823
  5. EZETIMIBE [Concomitant]
     Indication: HYPERCHOLESTEROLAEMIA
     Dates: start: 20080706
  6. GUAIFENESIN [Concomitant]
     Indication: NASAL CONGESTION
     Route: 048
     Dates: start: 20050628
  7. MONTELUKAST SODIUM [Concomitant]
     Indication: NASAL CONGESTION
     Route: 048
     Dates: start: 20050628
  8. MOMETASONE FUROATE [Concomitant]
     Indication: NASAL POLYPS
     Route: 055
     Dates: start: 20050628
  9. HYDROCHLOROTHIAZIDE [Concomitant]
     Indication: HYPERTENSION
     Route: 048
     Dates: start: 20011017
  10. ESOMEPRAZOLE MAGNESIUM [Concomitant]
     Indication: GASTROOESOPHAGEAL REFLUX DISEASE
     Route: 048
     Dates: start: 20020801
  11. PIOGLITAZONE [Concomitant]
     Indication: TYPE 2 DIABETES MELLITUS
     Route: 048
     Dates: start: 20070901

REACTIONS (1)
  - BREAST CANCER [None]
